FAERS Safety Report 9870088 (Version 1)
Quarter: 2014Q1

REPORT INFORMATION
  Report Type: Spontaneous
  Country: US (occurrence: US)
  Receive Date: 20140205
  Receipt Date: 20140205
  Transmission Date: 20141002
  Serious: No
  Sender: FDA-Public Use
  Company Number: US-PFIZER INC-2014032473

PATIENT
  Age: 69 Year
  Sex: Female
  Weight: 40.82 kg

DRUGS (14)
  1. LYRICA [Suspect]
     Indication: NEURALGIA
     Dosage: 75 MG, 2X/DAY
     Route: 048
  2. LYRICA [Suspect]
     Indication: SPINAL PAIN
  3. OXYCONTIN [Concomitant]
     Dosage: 20 MG, UNK
  4. OMEPRAZOLE [Concomitant]
     Dosage: 40 MG, UNK
  5. SPIRONOLACTONE [Concomitant]
     Dosage: 25 MG, UNK
  6. CARVEDILOL [Concomitant]
     Dosage: 3.125 MG, UNK
  7. BACLOFEN [Concomitant]
     Dosage: 10 MG, UNK
  8. RANITIDINE [Concomitant]
     Dosage: 150 MG, UNK
  9. TIZANIDINE [Concomitant]
     Dosage: 4 MG, UNK
  10. LISINOPRIL [Concomitant]
     Dosage: 5 MG, UNK
  11. LOVASTATIN [Concomitant]
     Dosage: 20 MG, UNK
  12. THEOPHYLLINE [Concomitant]
     Dosage: 200 MG, UNK
  13. LASIX [Concomitant]
     Dosage: 20 MG, UNK
  14. DIAZEPAM [Concomitant]
     Dosage: UNK, AS NEEDED

REACTIONS (2)
  - Vision blurred [Not Recovered/Not Resolved]
  - Cataract [Not Recovered/Not Resolved]
